FAERS Safety Report 5281373-7 (Version None)
Quarter: 2007Q1

REPORT INFORMATION
  Report Type: 
  Country: None (occurrence: None)
  Receive Date: 20070330
  Receipt Date: 20070319
  Transmission Date: 20070707
  Serious: Yes (Other)
  Sender: FDA-Public Use
  Company Number: DE-JNJFOC-20070303950

PATIENT
  Age: 65 Year
  Sex: Female
  Weight: 60 kg

DRUGS (3)
  1. RISPERDAL [Suspect]
     Dosage: SINCE 4 WEEKS
     Route: 048
  2. RISPERDAL [Suspect]
     Indication: DELUSIONAL DISORDER, PERSECUTORY TYPE
     Route: 048
  3. MIRTAZAPINE [Concomitant]
     Route: 048

REACTIONS (2)
  - AKATHISIA [None]
  - SPEECH DISORDER [None]
